FAERS Safety Report 18600158 (Version 1)
Quarter: 2020Q4

REPORT INFORMATION
  Report Type: Spontaneous
  Country: US (occurrence: US)
  Receive Date: 20201209
  Receipt Date: 20201209
  Transmission Date: 20210114
  Serious: Yes (Other)
  Sender: FDA-Public Use
  Company Number: None

PATIENT
  Age: 62 Year
  Sex: Male
  Weight: 65.77 kg

DRUGS (7)
  1. DAILY MULTI VITAMINS [Concomitant]
  2. XANAX [Concomitant]
     Active Substance: ALPRAZOLAM
  3. HYDROCODONE 7.5^S 325 [Suspect]
     Active Substance: HYDROCODONE
     Indication: TESTICULAR PAIN
     Dosage: ?          QUANTITY:1 TABLET ?
     Route: 048
     Dates: start: 19880701, end: 20201120
  4. HYDROCODONE 7.5^S 325 [Suspect]
     Active Substance: HYDROCODONE
     Indication: PAIN
     Dosage: ?          QUANTITY:1 TABLET ?
     Route: 048
     Dates: start: 19880701, end: 20201120
  5. INHALER FOR COPD [Concomitant]
  6. ALEVE ASPIREN [Concomitant]
  7. HIGH BLOOD PRESSURE MEDS [Concomitant]

REACTIONS (12)
  - Drug ineffective [None]
  - Emotional distress [None]
  - Panic attack [None]
  - Hyperhidrosis [None]
  - Nausea [None]
  - Hot flush [None]
  - Chills [None]
  - Vomiting [None]
  - Gait disturbance [None]
  - Pyrexia [None]
  - Insomnia [None]
  - Withdrawal syndrome [None]

NARRATIVE: CASE EVENT DATE: 20201105
